FAERS Safety Report 7247190-3 (Version None)
Quarter: 2011Q1

REPORT INFORMATION
  Report Type: 
  Country: None (occurrence: None)
  Receive Date: 20110127
  Receipt Date: 20110118
  Transmission Date: 20110831
  Serious: Yes (Other)
  Sender: FDA-Public Use
  Company Number: US-JNJFOC-20101103263

PATIENT
  Sex: Female

DRUGS (1)
  1. REMICADE [Suspect]
     Indication: CROHN'S DISEASE
     Route: 042

REACTIONS (6)
  - FALL [None]
  - HAEMATOMA [None]
  - ABSCESS LIMB [None]
  - CELLULITIS [None]
  - WOUND DRAINAGE [None]
  - LIMB INJURY [None]
